FAERS Safety Report 6368100-7 (Version None)
Quarter: 2009Q3

REPORT INFORMATION
  Report Type: 
  Country: None (occurrence: None)
  Receive Date: 20090922
  Receipt Date: 20090908
  Transmission Date: 20100115
  Serious: Yes (Hospitalization)
  Sender: FDA-Public Use
  Company Number: PHHY2009BR38401

PATIENT
  Age: 8 Year
  Sex: Male
  Weight: 25 kg

DRUGS (5)
  1. RITALIN [Suspect]
     Indication: ATTENTION DEFICIT/HYPERACTIVITY DISORDER
     Dosage: HALF TABLET DAILY
     Route: 048
  2. RITALIN [Suspect]
     Indication: LEARNING DISORDER
     Dosage: 1 TABLET DAILY
     Route: 048
  3. RITALIN [Suspect]
     Dosage: 1 TABLET IN THE MORNINGAND HALF TAB IN AFTERNOON
     Route: 048
     Dates: start: 20090908
  4. TOFRANIL [Suspect]
     Indication: ATTENTION DEFICIT/HYPERACTIVITY DISORDER
     Dosage: 20 MG 1 TABLET AT NIGHT
     Route: 048
  5. TOFRANIL [Suspect]
     Indication: LEARNING DISORDER

REACTIONS (6)
  - CHOKING [None]
  - CRYING [None]
  - DRUG INEFFECTIVE [None]
  - NERVOUSNESS [None]
  - OESOPHAGEAL DISORDER [None]
  - SURGERY [None]
